FAERS Safety Report 9436374 (Version 1)
Quarter: 2013Q3

REPORT INFORMATION
  Report Type: Spontaneous
  Country: US (occurrence: US)
  Receive Date: 20130802
  Receipt Date: 20130802
  Transmission Date: 20140515
  Serious: No
  Sender: FDA-Public Use
  Company Number: US-BIOGENIDEC-2013BI071191

PATIENT
  Age: 20 Year
  Sex: Female

DRUGS (1)
  1. AVONEX [Suspect]
     Indication: MULTIPLE SCLEROSIS
     Route: 030
     Dates: start: 20130729

REACTIONS (6)
  - Crying [Recovered/Resolved]
  - Nightmare [Recovered/Resolved]
  - Oropharyngeal pain [Not Recovered/Not Resolved]
  - Gait disturbance [Not Recovered/Not Resolved]
  - Headache [Not Recovered/Not Resolved]
  - Neck pain [Not Recovered/Not Resolved]
